FAERS Safety Report 4898514-3 (Version None)
Quarter: 2006Q1

REPORT INFORMATION
  Report Type: 
  Country: None (occurrence: None)
  Receive Date: 20060130
  Receipt Date: 20060118
  Transmission Date: 20060701
  Serious: Yes (Other)
  Sender: FDA-Public Use
  Company Number: 2006BH000774

PATIENT

DRUGS (3)
  1. FLUCONAZOLE INJECTION IN PLASTIC CONTAINER (FLUCONAZOLE) [Suspect]
     Indication: HIV INFECTION
  2. METHADONE HCL [Suspect]
     Indication: DRUG DEPENDENCE
  3. UNSPECIFIED ANTIRETROVIRAL DRUG [Suspect]
     Indication: HIV INFECTION

REACTIONS (5)
  - DIZZINESS [None]
  - ELECTROCARDIOGRAM QT PROLONGED [None]
  - SYNCOPE [None]
  - VENTRICULAR ARRHYTHMIA [None]
  - VERTIGO [None]
